FAERS Safety Report 13552054 (Version 2)
Quarter: 2017Q2

REPORT INFORMATION
  Report Type: Report from Study
  Country: PH (occurrence: PH)
  Receive Date: 20170516
  Receipt Date: 20170623
  Transmission Date: 20170830
  Serious: Yes (Hospitalization, Other)
  Sender: FDA-Public Use
  Company Number: PHHO2015PH018824

PATIENT
  Age: 19 Year
  Sex: Male
  Weight: 49 kg

DRUGS (13)
  1. EVEROLIMUS [Suspect]
     Active Substance: EVEROLIMUS
     Indication: RENAL TRANSPLANT
     Dosage: 0.75 MG, QD (0.50 MG AM+0.25 MG PM)
     Route: 048
     Dates: start: 20151030, end: 20160727
  2. VALTREX [Concomitant]
     Active Substance: VALACYCLOVIR HYDROCHLORIDE
     Indication: ANTIVIRAL TREATMENT
     Dosage: 500 MG, TID
     Route: 065
     Dates: start: 20151030
  3. CYCLOSPORINE. [Concomitant]
     Active Substance: CYCLOSPORINE
     Indication: RENAL TRANSPLANT
     Dosage: 25 MG, BID (25 MG AM+25 MG PM)
     Route: 048
     Dates: start: 20151030, end: 20160727
  4. PREDNISONE. [Concomitant]
     Active Substance: PREDNISONE
     Indication: RENAL TRANSPLANT
     Dosage: 10 MG, QD
     Route: 065
     Dates: start: 20151113, end: 20160727
  5. OMEPRAZOLE. [Concomitant]
     Active Substance: OMEPRAZOLE
     Indication: PRODUCT USED FOR UNKNOWN INDICATION
     Dosage: 40 MG, QD
     Route: 065
     Dates: start: 20151031
  6. EPOETIN BETA [Concomitant]
     Active Substance: ERYTHROPOIETIN
     Indication: ANAEMIA
     Dosage: 5000 IU(SQ)
     Route: 065
     Dates: start: 20151104
  7. SIMULECT [Concomitant]
     Active Substance: BASILIXIMAB
     Indication: RENAL TRANSPLANT
     Dosage: 20 MG, UNK
     Route: 042
     Dates: start: 20151029
  8. INH [Concomitant]
     Active Substance: ISONIAZID
     Indication: TUBERCULOSIS
     Dosage: 300 MG, QD
     Route: 065
     Dates: start: 20151030
  9. CYCLOSPORINE. [Concomitant]
     Active Substance: CYCLOSPORINE
     Dosage: UNK
     Route: 048
     Dates: start: 20160812
  10. AMLODIPINE [Concomitant]
     Active Substance: AMLODIPINE BESYLATE
     Indication: HYPERTENSION
     Dosage: 5 MG, BID
     Route: 065
     Dates: start: 20151108
  11. CO-TRIMOXAZOLE FORTE [Concomitant]
     Active Substance: SULFAMETHOXAZOLE\TRIMETHOPRIM
     Indication: PROPHYLAXIS
     Dosage: MWF
     Route: 065
     Dates: start: 20151030
  12. NYSTATIN. [Concomitant]
     Active Substance: NYSTATIN
     Indication: ANTIFUNGAL TREATMENT
     Dosage: BCC SWISH AND SVOCLLOW, TID
     Route: 065
     Dates: start: 20151030
  13. CALCIUM CARBONATE. [Concomitant]
     Active Substance: CALCIUM CARBONATE
     Indication: HYPOCALCAEMIA
     Dosage: 500 MG, TID
     Route: 065
     Dates: start: 20151105

REACTIONS (9)
  - Blood creatinine increased [Recovered/Resolved]
  - Acute respiratory failure [Recovered/Resolved]
  - Renal tubular necrosis [Recovered/Resolved]
  - Viral infection [Recovered/Resolved]
  - Kidney transplant rejection [Recovered/Resolved]
  - Dehydration [Recovered/Resolved]
  - Kidney transplant rejection [Not Recovered/Not Resolved]
  - Electrolyte imbalance [Recovered/Resolved]
  - Gastroenteritis [Recovered/Resolved]

NARRATIVE: CASE EVENT DATE: 20151101
